FAERS Safety Report 22849955 (Version 2)
Quarter: 2024Q3

REPORT INFORMATION
  Report Type: Spontaneous
  Country: US (occurrence: None)
  Receive Date: 20230822
  Receipt Date: 20240823
  Transmission Date: 20241017
  Serious: Yes (Hospitalization, Other)
  Sender: EMMAUS LIFE SCIENCES
  Company Number: US-Emmaus Medical, Inc.-EMM202301-000022

PATIENT
  Sex: Female

DRUGS (3)
  1. ENDARI [Suspect]
     Active Substance: GLUTAMINE
     Indication: Sickle cell anaemia with crisis
     Dosage: 15 G (THREE PACKETS)
     Route: 048
     Dates: start: 20221229
  2. ENDARI [Suspect]
     Active Substance: GLUTAMINE
     Indication: Acute chest syndrome
     Dosage: UNKNOWN
     Route: 048
  3. ENDARI [Suspect]
     Active Substance: GLUTAMINE
     Dosage: 15 G
     Route: 048
     Dates: start: 202307

REACTIONS (7)
  - Sickle cell anaemia with crisis [Unknown]
  - Abdominal distension [Unknown]
  - Abdominal discomfort [Unknown]
  - Nausea [Unknown]
  - Constipation [Unknown]
  - Product dose omission issue [Unknown]
  - Intentional dose omission [Unknown]
